FAERS Safety Report 5124260-7 (Version None)
Quarter: 2006Q3

REPORT INFORMATION
  Report Type: 
  Country: None (occurrence: None)
  Receive Date: 20060816
  Receipt Date: 20060309
  Transmission Date: 20061208
  Serious: Yes (Hospitalization, Other)
  Sender: FDA-Public Use
  Company Number: C-06-0014

PATIENT
  Age: 13 Year
  Sex: Female
  Weight: 56.6996 kg

DRUGS (2)
  1. PREDNISOLONE [Suspect]
     Indication: INFECTIOUS MONONUCLEOSIS
     Dosage: 10ML ORALLY TWICE/DAY
     Route: 048
     Dates: start: 20060301, end: 20060308
  2. CEFZIL [Concomitant]

REACTIONS (1)
  - DRUG INEFFECTIVE [None]
